FAERS Safety Report 16441545 (Version 1)
Quarter: 2019Q2

REPORT INFORMATION
  Report Type: Report from Study
  Country: US (occurrence: US)
  Receive Date: 20190617
  Receipt Date: 20190617
  Transmission Date: 20190711
  Serious: Yes (Other)
  Sender: FDA-Public Use
  Company Number: US-ELI_LILLY_AND_COMPANY-US201712003359

PATIENT
  Age: 56 Year
  Sex: Female

DRUGS (5)
  1. TERIPARATIDE [Suspect]
     Active Substance: TERIPARATIDE
     Dosage: UNK, 2/W
     Route: 065
  2. TERIPARATIDE [Suspect]
     Active Substance: TERIPARATIDE
     Dosage: UNK, 3/W
     Route: 065
  3. TERIPARATIDE [Suspect]
     Active Substance: TERIPARATIDE
     Indication: OSTEOPOROSIS
     Dosage: UNK, UNKNOWN
     Route: 065
     Dates: start: 2015, end: 2015
  4. TERIPARATIDE [Suspect]
     Active Substance: TERIPARATIDE
     Dosage: UNK, 5/W
     Route: 065
  5. PREDNISONE. [Suspect]
     Active Substance: PREDNISONE
     Indication: PRODUCT USED FOR UNKNOWN INDICATION
     Dosage: UNK UNK, UNKNOWN
     Route: 065

REACTIONS (33)
  - Intervertebral disc compression [Unknown]
  - Chondropathy [Unknown]
  - Injection site reaction [Recovered/Resolved]
  - Chest pain [Recovering/Resolving]
  - Neuropathy peripheral [Unknown]
  - Diarrhoea [Recovered/Resolved]
  - Injection site mass [Unknown]
  - Injection site pruritus [Recovering/Resolving]
  - Arthralgia [Unknown]
  - Fall [Unknown]
  - Foot fracture [Unknown]
  - Hypotension [Unknown]
  - Heart rate increased [Unknown]
  - Discomfort [Recovering/Resolving]
  - Dizziness [Recovered/Resolved]
  - Chest discomfort [Recovered/Resolved]
  - Neck pain [Recovering/Resolving]
  - Feeling abnormal [Recovering/Resolving]
  - Injection site erythema [Recovering/Resolving]
  - Gait disturbance [Unknown]
  - Joint swelling [Unknown]
  - Malaise [Recovering/Resolving]
  - Dizziness [Unknown]
  - Inappropriate schedule of product administration [Recovered/Resolved]
  - Ligament sprain [Unknown]
  - Arthritis [Unknown]
  - Chest discomfort [Recovered/Resolved]
  - Erythema [Unknown]
  - Asthenia [Unknown]
  - Intervertebral disc protrusion [Unknown]
  - Back pain [Unknown]
  - Ankle fracture [Unknown]
  - Inappropriate schedule of product administration [Unknown]

NARRATIVE: CASE EVENT DATE: 2015
